FAERS Safety Report 23314178 (Version 20)
Quarter: 2025Q2

REPORT INFORMATION
  Report Type: Report from Study
  Country: US (occurrence: US)
  Receive Date: 20231219
  Receipt Date: 20250619
  Transmission Date: 20250717
  Serious: Yes (Hospitalization, Other)
  Sender: TAKEDA
  Company Number: US-TAKEDA-2022TUS042887

PATIENT
  Age: 52 Year
  Sex: Male
  Weight: 54 kg

DRUGS (38)
  1. .ALPHA.1-PROTEINASE INHIBITOR HUMAN [Suspect]
     Active Substance: .ALPHA.1-PROTEINASE INHIBITOR HUMAN
     Indication: Alpha-1 antitrypsin deficiency
     Dosage: 60 MILLIGRAM/KILOGRAM, 1/WEEK
     Dates: start: 20220214
  2. .ALPHA.1-PROTEINASE INHIBITOR HUMAN [Suspect]
     Active Substance: .ALPHA.1-PROTEINASE INHIBITOR HUMAN
  3. EPINEPHRINE [Concomitant]
     Active Substance: EPINEPHRINE
  4. DIPHENHYDRAMINE [Concomitant]
     Active Substance: DIPHENHYDRAMINE
  5. HEPARIN [Concomitant]
     Active Substance: HEPARIN SODIUM
  6. SODIUM CHLORIDE [Concomitant]
     Active Substance: SODIUM CHLORIDE
  7. BUSPIRONE HCL [Concomitant]
     Active Substance: BUSPIRONE HYDROCHLORIDE
  8. MIRTAZAPINE [Concomitant]
     Active Substance: MIRTAZAPINE
  9. AZITHROMYCIN [Concomitant]
     Active Substance: AZITHROMYCIN
  10. GABAPENTIN [Concomitant]
     Active Substance: GABAPENTIN
  11. HYDROXYZINE HYDROCHLORIDE [Concomitant]
     Active Substance: HYDROXYZINE HYDROCHLORIDE
  12. SPIRIVA [Concomitant]
     Active Substance: TIOTROPIUM BROMIDE MONOHYDRATE
  13. IPRATROPIUM [Concomitant]
     Active Substance: IPRATROPIUM
  14. ALBUTEROL [Concomitant]
     Active Substance: ALBUTEROL
  15. OXYGEN [Concomitant]
     Active Substance: OXYGEN
  16. BROVANA [Concomitant]
     Active Substance: ARFORMOTEROL TARTRATE
  17. AER [Concomitant]
  18. NAPROXEN [Concomitant]
     Active Substance: NAPROXEN
  19. PROAIR HFA [Concomitant]
     Active Substance: ALBUTEROL SULFATE
  20. PULMICORT TURBUHALER [Concomitant]
     Active Substance: BUDESONIDE
  21. MORPHINE SULFATE [Concomitant]
     Active Substance: MORPHINE SULFATE
  22. COMBIVENT RESPIMAT [Concomitant]
     Active Substance: ALBUTEROL SULFATE\IPRATROPIUM BROMIDE
  23. TYLENOL EXTRA STRENGTH [Concomitant]
     Active Substance: ACETAMINOPHEN
  24. CALCIUM\VITAMIN D [Concomitant]
     Active Substance: CALCIUM\VITAMIN D
  25. ALBUTEROL\IPRATROPIUM [Concomitant]
     Active Substance: ALBUTEROL\IPRATROPIUM
  26. DALIRESP [Concomitant]
     Active Substance: ROFLUMILAST
  27. TIZANIDINE HYDROCHLORIDE [Concomitant]
     Active Substance: TIZANIDINE HYDROCHLORIDE
  28. MELATONIN [Concomitant]
     Active Substance: MELATONIN
  29. CYMBALTA [Concomitant]
     Active Substance: DULOXETINE HYDROCHLORIDE
  30. FAMOTIDINE [Concomitant]
     Active Substance: FAMOTIDINE
  31. OMEPRAZOLE [Concomitant]
     Active Substance: OMEPRAZOLE
  32. GUAIFENESIN [Concomitant]
     Active Substance: GUAIFENESIN
  33. DIPHENHYDRAMINE HYDROCHLORIDE [Concomitant]
     Active Substance: DIPHENHYDRAMINE HYDROCHLORIDE
  34. CODEINE PHOSPHATE\GUAIFENESIN [Concomitant]
     Active Substance: CODEINE PHOSPHATE\GUAIFENESIN
  35. TRAZODONE HCL [Concomitant]
     Active Substance: TRAZODONE HYDROCHLORIDE
  36. PREDNISONE [Concomitant]
     Active Substance: PREDNISONE
  37. IBUPROFEN [Concomitant]
     Active Substance: IBUPROFEN
  38. FLONASE ALLERGY RELIEF [Concomitant]
     Active Substance: FLUTICASONE PROPIONATE

REACTIONS (26)
  - Pneumonia [Recovered/Resolved]
  - Respiratory distress [Unknown]
  - Stress [Unknown]
  - Constipation [Unknown]
  - Pneumothorax [Unknown]
  - Immobile [Unknown]
  - Malaise [Unknown]
  - Dyspnoea [Unknown]
  - Weight decreased [Unknown]
  - Influenza [Unknown]
  - Memory impairment [Unknown]
  - Insurance issue [Recovered/Resolved]
  - Muscle spasms [Unknown]
  - COVID-19 [Recovered/Resolved]
  - Infusion site discharge [Unknown]
  - Pleural effusion [Recovered/Resolved]
  - Device issue [Unknown]
  - Catheter site inflammation [Not Recovered/Not Resolved]
  - Catheter site erythema [Not Recovered/Not Resolved]
  - Product use issue [Recovered/Resolved]
  - Product dose omission issue [Not Recovered/Not Resolved]
  - Inappropriate schedule of product administration [Unknown]
  - Decreased appetite [Unknown]
  - Back pain [Unknown]
  - Headache [Unknown]
  - Nausea [Unknown]

NARRATIVE: CASE EVENT DATE: 20221205
